FAERS Safety Report 18335208 (Version 2)
Quarter: 2020Q4

REPORT INFORMATION
  Report Type: Spontaneous
  Country: US (occurrence: US)
  Receive Date: 20201001
  Receipt Date: 20201007
  Transmission Date: 20210113
  Serious: No
  Sender: FDA-Public Use
  Company Number: US-BIOGEN-2020BI00926672

PATIENT
  Sex: Female

DRUGS (5)
  1. TECFIDERA [Suspect]
     Active Substance: DIMETHYL FUMARATE
     Route: 065
     Dates: start: 20160105
  2. TECFIDERA [Suspect]
     Active Substance: DIMETHYL FUMARATE
     Route: 048
  3. TECFIDERA [Suspect]
     Active Substance: DIMETHYL FUMARATE
     Indication: RELAPSING-REMITTING MULTIPLE SCLEROSIS
     Dosage: MAINTENANCE DOSE
     Route: 065
     Dates: start: 20140212, end: 20151201
  4. TECFIDERA [Suspect]
     Active Substance: DIMETHYL FUMARATE
     Route: 065
     Dates: start: 20130807
  5. TECFIDERA [Suspect]
     Active Substance: DIMETHYL FUMARATE
     Route: 065
     Dates: start: 20151216

REACTIONS (23)
  - Dyspnoea [Unknown]
  - Ovarian cyst [Unknown]
  - Increased tendency to bruise [Unknown]
  - Palpitations [Unknown]
  - Arthralgia [Unknown]
  - Hot flush [Not Recovered/Not Resolved]
  - Weight abnormal [Unknown]
  - Stress [Unknown]
  - Multiple sclerosis relapse [Unknown]
  - Product dose omission issue [Unknown]
  - Lymphadenopathy [Unknown]
  - Abdominal pain [Unknown]
  - Abdominal hernia [Unknown]
  - Headache [Unknown]
  - Temperature intolerance [Unknown]
  - Nausea [Unknown]
  - Abdominal discomfort [Recovered/Resolved]
  - Photophobia [Unknown]
  - Phonophobia [Unknown]
  - Anxiety [Unknown]
  - Nasopharyngitis [Unknown]
  - Multiple sclerosis [Unknown]
  - Back pain [Unknown]
